FAERS Safety Report 16817854 (Version 1)
Quarter: 2019Q3

REPORT INFORMATION
  Report Type: Spontaneous
  Country: US (occurrence: US)
  Receive Date: 20190917
  Receipt Date: 20190917
  Transmission Date: 20191005
  Serious: No
  Sender: FDA-Public Use
  Company Number: US-GLAXOSMITHKLINE-US2019165409

PATIENT
  Age: 52 Year
  Sex: Female

DRUGS (2)
  1. FLONASE [Suspect]
     Active Substance: FLUTICASONE PROPIONATE
     Indication: HYPERSENSITIVITY
     Dosage: UNK,(I USE THREE PUFFS AT ONE SETTING)
     Dates: start: 201908
  2. FLONASE [Suspect]
     Active Substance: FLUTICASONE PROPIONATE
     Indication: SINUS POLYP
     Dosage: UNK
     Dates: start: 201901

REACTIONS (8)
  - Nasal congestion [Unknown]
  - Nasal polyps [Unknown]
  - Product use in unapproved indication [Unknown]
  - Dyspnoea [Unknown]
  - Insomnia [Unknown]
  - Incorrect dose administered [Unknown]
  - Condition aggravated [Unknown]
  - Incorrect product administration duration [Unknown]
